FAERS Safety Report 5857859-0 (Version None)
Quarter: 2008Q3

REPORT INFORMATION
  Report Type: 
  Country: None (occurrence: None)
  Receive Date: 20080822
  Receipt Date: 20080811
  Transmission Date: 20090109
  Serious: Yes (Hospitalization)
  Sender: FDA-Public Use
  Company Number: DSA_32281_2008

PATIENT
  Sex: Female

DRUGS (3)
  1. LORAZEPAM [Suspect]
     Dosage: 3 MG 1X NOT THE PRESCRIBED AMOUNT ORAL
     Route: 048
     Dates: start: 20080811, end: 20080811
  2. TREVILOR (TREVILOR RETARD - VENLAFAXINE HYDROCHLORIDE 150 MG (NOT SPEC [Suspect]
     Dosage: 6000 MG 1X NOT THE PRESCRIBED AMOUNT ORAL
     Route: 048
     Dates: start: 20080811, end: 20080811
  3. METHYLPHENIDATE HYDROCHLORIDE [Suspect]
     Dosage: 1200 MG 1X NOT THE PRESCRIBED AMOUNT ORAL
     Route: 048
     Dates: start: 20080811, end: 20080811

REACTIONS (4)
  - MULTIPLE DRUG OVERDOSE INTENTIONAL [None]
  - MYDRIASIS [None]
  - RESTLESSNESS [None]
  - SUICIDE ATTEMPT [None]
